FAERS Safety Report 8388224 (Version 2)
Quarter: 2013Q1

REPORT INFORMATION
  Report Type: Spontaneous
  Country: US (occurrence: US)
  Receive Date: 20120203
  Receipt Date: 20130228
  Transmission Date: 20140127
  Serious: No
  Sender: FDA-Public Use
  Company Number: US-GLAXOSMITHKLINE-A0929867A

PATIENT
  Age: 62 Year
  Sex: Male

DRUGS (5)
  1. LAMICTAL [Suspect]
     Indication: CONVULSION
     Dosage: 150MG TWICE PER DAY
     Route: 048
     Dates: start: 2009
  2. LAMICTAL XR [Suspect]
     Indication: CONVULSION
     Dosage: 300MG PER DAY
     Dates: start: 2010, end: 2010
  3. ASA [Concomitant]
  4. VITAMIN D [Concomitant]
  5. CALCIUM [Concomitant]

REACTIONS (2)
  - Insomnia [Not Recovered/Not Resolved]
  - Rapid eye movements sleep abnormal [Unknown]
